FAERS Safety Report 8301084-0 (Version None)
Quarter: 2012Q2

REPORT INFORMATION
  Report Type: 
  Country: None (occurrence: None)
  Receive Date: 20120420
  Receipt Date: 20120412
  Transmission Date: 20120825
  Serious: Yes (Hospitalization)
  Sender: FDA-Public Use
  Company Number: IE-MEDIMMUNE-MEDI-0014392

PATIENT
  Sex: Female
  Weight: 6.5 kg

DRUGS (3)
  1. SYNAGIS [Suspect]
     Route: 030
     Dates: start: 20111109, end: 20111109
  2. ERGOCALCIFEROL [Concomitant]
  3. LACTULOSE [Concomitant]

REACTIONS (1)
  - BRONCHIOLITIS [None]
